FAERS Safety Report 6684259-6 (Version None)
Quarter: 2010Q2

REPORT INFORMATION
  Report Type: 
  Country: None (occurrence: None)
  Receive Date: 20100416
  Receipt Date: 20100407
  Transmission Date: 20101027
  Serious: Yes (Death)
  Sender: FDA-Public Use
  Company Number: US-JNJFOC-20090904904

PATIENT
  Sex: Female
  Weight: 75.3 kg

DRUGS (8)
  1. FENTANYL CITRATE [Suspect]
     Indication: PAIN
     Dosage: 15 DAY PRESCRIPTION
     Route: 062
  2. HYDROCODONE BITARTRATE [Concomitant]
  3. MORPHINE [Concomitant]
  4. PROMETHAZINE [Concomitant]
  5. FLUOXETINE [Concomitant]
  6. DEXTROMETHORPHAN [Concomitant]
  7. PROPOXYPHENE HCL [Concomitant]
  8. NORTRIPTYLINE HCL [Concomitant]

REACTIONS (2)
  - DRUG ADMINISTERED AT INAPPROPRIATE SITE [None]
  - NARCOTIC INTOXICATION [None]
